FAERS Safety Report 5085043-X (Version None)
Quarter: 2006Q3

REPORT INFORMATION
  Report Type: 
  Country: None (occurrence: None)
  Receive Date: 20060815
  Receipt Date: 20060801
  Transmission Date: 20061208
  Serious: Yes (Hospitalization, Other)
  Sender: FDA-Public Use
  Company Number: US200608000481

PATIENT
  Age: 68 Year
  Sex: Male

DRUGS (4)
  1. HUMALOG PEN [Suspect]
     Indication: DIABETES MELLITUS
     Dates: start: 20060701
  2. HUMALOG [Suspect]
     Indication: DIABETES MELLITUS
     Dosage: 65 U
     Dates: start: 20060801
  3. HUMALOG PEN [Concomitant]
  4. LANTUS [Concomitant]

REACTIONS (6)
  - BLOOD GLUCOSE FLUCTUATION [None]
  - CATHETERISATION CARDIAC [None]
  - INCORRECT DOSE ADMINISTERED [None]
  - MEDICAL DEVICE COMPLICATION [None]
  - PHARMACEUTICAL PRODUCT COMPLAINT [None]
  - SLEEP DISORDER [None]
